FAERS Safety Report 12808776 (Version 1)
Quarter: 2016Q4

REPORT INFORMATION
  Report Type: Report from Study
  Country: US (occurrence: US)
  Receive Date: 20161004
  Receipt Date: 20161004
  Transmission Date: 20170207
  Serious: Yes (Hospitalization, Other)
  Sender: FDA-Public Use
  Company Number: US-GILEAD-2016-0233011

PATIENT
  Age: 70 Year
  Sex: Male

DRUGS (12)
  1. ISORDIL [Concomitant]
     Active Substance: ISOSORBIDE DINITRATE
  2. LIPITOR [Concomitant]
     Active Substance: ATORVASTATIN CALCIUM
  3. SYNTHROID [Concomitant]
     Active Substance: LEVOTHYROXINE SODIUM
  4. REVLIMID [Concomitant]
     Active Substance: LENALIDOMIDE
  5. COREG [Concomitant]
     Active Substance: CARVEDILOL
  6. IDELALISIB [Suspect]
     Active Substance: IDELALISIB
     Dosage: 150 MG, BID
     Route: 048
     Dates: start: 20160329, end: 20160809
  7. ALLOPURINOL. [Concomitant]
     Active Substance: ALLOPURINOL
  8. GLUCOPHAGE [Concomitant]
     Active Substance: METFORMIN HYDROCHLORIDE
  9. IDELALISIB [Suspect]
     Active Substance: IDELALISIB
     Indication: B-CELL LYMPHOMA
     Dosage: 150 MG, BID
     Route: 048
     Dates: start: 20151211, end: 20160321
  10. ASA [Concomitant]
     Active Substance: ASPIRIN
  11. OXYCODONE [Concomitant]
     Active Substance: OXYCODONE
  12. LISINOPRIL. [Concomitant]
     Active Substance: LISINOPRIL

REACTIONS (3)
  - Lip swelling [Unknown]
  - Diarrhoea [Recovered/Resolved]
  - Clostridium difficile infection [Recovered/Resolved]
